FAERS Safety Report 5138233-1 (Version None)
Quarter: 2006Q4

REPORT INFORMATION
  Report Type: 
  Country: None (occurrence: None)
  Receive Date: 20061030
  Receipt Date: 20060731
  Transmission Date: 20070319
  Serious: No
  Sender: FDA-Public Use
  Company Number: US-GLAXOSMITHKLINE-A0614194A

PATIENT
  Age: 85 Year
  Sex: Female

DRUGS (3)
  1. ADVAIR HFA [Suspect]
     Indication: ASTHMA
     Route: 055
     Dates: start: 20000101
  2. SINGULAIR [Concomitant]
  3. ENALAPRIL MALEATE [Concomitant]

REACTIONS (2)
  - APHONIA [None]
  - DYSPHONIA [None]
